FAERS Safety Report 5782589-3 (Version None)
Quarter: 2008Q2

REPORT INFORMATION
  Report Type: 
  Country: None (occurrence: None)
  Receive Date: 20080624
  Receipt Date: 20080612
  Transmission Date: 20081010
  Serious: Yes (Other)
  Sender: FDA-Public Use
  Company Number: US-PFIZER INC-2008049894

PATIENT
  Sex: Male
  Weight: 77.6 kg

DRUGS (1)
  1. SUTENT [Suspect]
     Indication: METASTATIC RENAL CELL CARCINOMA
     Route: 048

REACTIONS (6)
  - ALANINE AMINOTRANSFERASE [None]
  - ANGIOEDEMA [None]
  - ASPARTATE AMINOTRANSFERASE [None]
  - BLOOD ALBUMIN [None]
  - HAEMATOCRIT [None]
  - HAEMOGLOBIN [None]
